FAERS Safety Report 6719390-X (Version None)
Quarter: 2010Q2

REPORT INFORMATION
  Report Type: 
  Country: None (occurrence: None)
  Receive Date: 20100511
  Receipt Date: 20100503
  Transmission Date: 20101027
  Serious: Yes (Other)
  Sender: FDA-Public Use
  Company Number: LT-AMGEN-KDL406277

PATIENT
  Sex: Male
  Weight: 84 kg

DRUGS (1)
  1. VECTIBIX [Suspect]
     Indication: COLORECTAL CANCER
     Route: 042
     Dates: start: 20100122

REACTIONS (11)
  - DRY EYE [None]
  - DRY SKIN [None]
  - ERYTHEMA [None]
  - EYE DISCHARGE [None]
  - OCULAR HYPERAEMIA [None]
  - PARONYCHIA [None]
  - PRURITUS [None]
  - RASH [None]
  - SKIN EXFOLIATION [None]
  - SKIN TOXICITY [None]
  - SWELLING FACE [None]
